FAERS Safety Report 9715383 (Version 2)
Quarter: 2013Q4

REPORT INFORMATION
  Report Type: Spontaneous
  Country: US (occurrence: US)
  Receive Date: 20131127
  Receipt Date: 20131127
  Transmission Date: 20140711
  Serious: Yes (Hospitalization)
  Sender: FDA-Public Use
  Company Number: US-BIOGENIDEC-140917

PATIENT
  Age: 52 Year
  Sex: Female
  Weight: 85 kg

DRUGS (9)
  1. AVONEX [Suspect]
     Indication: MULTIPLE SCLEROSIS
     Route: 030
  2. AVONEX [Suspect]
     Indication: MULTIPLE SCLEROSIS
     Route: 030
     Dates: start: 199703, end: 200005
  3. PREMARIN [Concomitant]
  4. ULTRAM [Concomitant]
  5. FLEXERIL [Concomitant]
  6. VICODIN [Concomitant]
     Indication: PAIN
  7. AMANTADINE [Concomitant]
  8. ZOMIG [Concomitant]
     Indication: MIGRAINE
  9. ASPIRIN [Concomitant]

REACTIONS (10)
  - Cardiomyopathy [Recovered/Resolved with Sequelae]
  - Hypertension [Recovered/Resolved with Sequelae]
  - Blood pressure abnormal [Unknown]
  - Injection site scar [Unknown]
  - Cognitive disorder [Unknown]
  - Hypersomnia [Unknown]
  - Muscle atrophy [Unknown]
  - Injection site pain [Unknown]
  - Flushing [Unknown]
  - Fatigue [Unknown]
